FAERS Safety Report 21861243 (Version 2)
Quarter: 2023Q2

REPORT INFORMATION
  Report Type: Report from Study
  Country: CA (occurrence: CA)
  Receive Date: 20230113
  Receipt Date: 20230508
  Transmission Date: 20230721
  Serious: Yes (Death, Hospitalization, Other)
  Sender: FDA-Public Use
  Company Number: CA-HLS-202300049

PATIENT
  Age: 60 Year
  Sex: Male

DRUGS (1)
  1. CLOZARIL [Suspect]
     Active Substance: CLOZAPINE
     Indication: Product used for unknown indication
     Route: 048
     Dates: start: 20140114, end: 20230122

REACTIONS (3)
  - Death [Fatal]
  - Sedation [Unknown]
  - Seizure [Unknown]

NARRATIVE: CASE EVENT DATE: 20230122
